FAERS Safety Report 7776455-1 (Version None)
Quarter: 2011Q3

REPORT INFORMATION
  Report Type: 
  Country: None (occurrence: None)
  Receive Date: 20110926
  Receipt Date: 20110913
  Transmission Date: 20111222
  Serious: Yes (Hospitalization, Other)
  Sender: FDA-Public Use
  Company Number: US-ELI_LILLY_AND_COMPANY-US201109004396

PATIENT
  Sex: Female

DRUGS (6)
  1. HYDROCODONE [Concomitant]
     Dosage: UNK, UNKNOWN
  2. FORTEO [Suspect]
     Indication: OSTEOPOROSIS
     Dosage: 20 UG, QD
     Dates: start: 20110603, end: 20110901
  3. OMEPRAZOLE [Concomitant]
     Dosage: UNK, UNKNOWN
  4. IBUPROFEN [Concomitant]
     Dosage: UNK, UNKNOWN
  5. TYLENOL                                 /SCH/ [Concomitant]
     Dosage: UNK, UNKNOWN
  6. DIOVAN [Concomitant]
     Dosage: UNK, UNKNOWN

REACTIONS (3)
  - FALL [None]
  - FEMUR FRACTURE [None]
  - ANAEMIA [None]
